FAERS Safety Report 8291434 (Version 2)
Quarter: 2012Q4

REPORT INFORMATION
  Report Type: Report from Study
  Country: JP (occurrence: JP)
  Receive Date: 20111214
  Receipt Date: 20121023
  Transmission Date: 20130627
  Serious: Yes (Death, Hospitalization, Other)
  Sender: FDA-Public Use
  Company Number: JP-CELGENEUS-087-50794-11121409

PATIENT
  Age: 77 Year
  Sex: Male
  Weight: 54 kg

DRUGS (24)
  1. VIDAZA [Suspect]
     Indication: MDS
     Dosage: 100 Milligram
     Route: 058
     Dates: start: 20110415, end: 20110418
  2. VIDAZA [Suspect]
     Dosage: 110 Milligram
     Route: 058
     Dates: start: 20110419, end: 20110421
  3. VIDAZA [Suspect]
     Dosage: 110 Milligram
     Route: 058
     Dates: start: 20110516, end: 20110522
  4. VIDAZA [Suspect]
     Dosage: 110 Milligram
     Route: 058
     Dates: start: 20110623, end: 20110630
  5. VIDAZA [Suspect]
     Dosage: 110 Milligram
     Route: 058
     Dates: start: 20110726, end: 20110727
  6. TRANSFUSION [Concomitant]
     Indication: DRUG USE FOR UNKNOWN INDICATION
     Route: 041
  7. ALTAT [Concomitant]
     Indication: DRUG USE FOR UNKNOWN INDICATION
     Dosage: 75 Milligram
     Route: 048
     Dates: start: 20110413, end: 20110508
  8. ALTAT [Concomitant]
     Dosage: 75 Milligram
     Route: 048
     Dates: start: 20110516, end: 20110622
  9. NASEA [Concomitant]
     Indication: DRUG USE FOR UNKNOWN INDICATION
     Dosage: .1 Milligram
     Route: 048
     Dates: start: 20110415, end: 20110421
  10. KYTRIL [Concomitant]
     Indication: DRUG USE FOR UNKNOWN INDICATION
     Dosage: 2 Milligram
     Route: 048
     Dates: start: 20110516, end: 20110522
  11. KYTRIL [Concomitant]
     Dosage: 2 Milligram
     Route: 048
     Dates: start: 20110623, end: 20110630
  12. KYTRIL [Concomitant]
     Dosage: 2 Milligram
     Route: 048
     Dates: start: 20110726, end: 20110727
  13. PURSENNID [Concomitant]
     Indication: DRUG USE FOR UNKNOWN INDICATION
     Dosage: 24 Milligram
     Route: 048
     Dates: start: 20110418, end: 20110509
  14. PURSENNID [Concomitant]
     Dosage: 24 Milligram
     Route: 048
     Dates: start: 20110519, end: 20110609
  15. PURSENNID [Concomitant]
     Dosage: 24 Milligram
     Route: 048
     Dates: start: 20110625, end: 20110710
  16. PURSENNID [Concomitant]
     Dosage: 24 Milligram
     Route: 048
     Dates: start: 20110721, end: 20110730
  17. ITRIZOLE [Concomitant]
     Indication: DRUG USE FOR UNKNOWN INDICATION
     Dosage: 100 Milligram
     Route: 048
     Dates: start: 20110618, end: 20110701
  18. CRAVIT [Concomitant]
     Indication: DRUG USE FOR UNKNOWN INDICATION
     Dosage: 500 Milligram
     Route: 048
     Dates: start: 20110618, end: 20110810
  19. BACTRAMIN [Concomitant]
     Indication: DRUG USE FOR UNKNOWN INDICATION
     Dosage: 8 DF
     Route: 048
     Dates: start: 20110618, end: 20110816
  20. FAMOSTAGINE [Concomitant]
     Indication: DRUG USE FOR UNKNOWN INDICATION
     Dosage: 20 Milligram
     Route: 048
     Dates: start: 20110622, end: 20111028
  21. FLUCONAZOLE [Concomitant]
     Indication: DRUG USE FOR UNKNOWN INDICATION
     Dosage: 100 Milligram
     Route: 048
     Dates: start: 20110702, end: 20110714
  22. FLUCONAZOLE [Concomitant]
     Dosage: 100 Milligram
     Route: 048
     Dates: start: 20110721, end: 20110817
  23. ROZECLART [Concomitant]
     Indication: DRUG USE FOR UNKNOWN INDICATION
     Dosage: 1 Gram
     Route: 041
     Dates: start: 20110725, end: 20110725
  24. ROZECLART [Concomitant]
     Dosage: 2 Gram
     Route: 041
     Dates: start: 20110726, end: 20110728

REACTIONS (13)
  - Myelodysplastic syndrome [Fatal]
  - Neutrophil count decreased [Not Recovered/Not Resolved]
  - White blood cell count decreased [Not Recovered/Not Resolved]
  - Febrile neutropenia [Recovered/Resolved]
  - Haemoglobin decreased [Not Recovered/Not Resolved]
  - Constipation [Recovering/Resolving]
  - Constipation [Recovering/Resolving]
  - Red blood cell count decreased [Not Recovered/Not Resolved]
  - Platelet count decreased [Recovered/Resolved]
  - Constipation [Recovered/Resolved]
  - Platelet count decreased [Not Recovered/Not Resolved]
  - Constipation [Recovered/Resolved]
  - Haemoglobin decreased [Not Recovered/Not Resolved]
